FAERS Safety Report 21469012 (Version 2)
Quarter: 2022Q4

REPORT INFORMATION
  Report Type: Spontaneous
  Country: US (occurrence: US)
  Receive Date: 20221018
  Receipt Date: 20221101
  Transmission Date: 20230113
  Serious: Yes (Other)
  Sender: FDA-Public Use
  Company Number: US-Hikma Pharmaceuticals USA Inc.-US-H14001-22-02582

PATIENT
  Age: 68 Year
  Sex: Male

DRUGS (1)
  1. INFUMORPH [Suspect]
     Active Substance: MORPHINE SULFATE
     Indication: Spinal pain
     Dosage: UNKNOWN
     Route: 037
     Dates: start: 20220823

REACTIONS (3)
  - Infection [Recovered/Resolved]
  - Skin necrosis [Recovered/Resolved]
  - Fat necrosis [Recovered/Resolved]

NARRATIVE: CASE EVENT DATE: 20221004
